FAERS Safety Report 11316227 (Version 1)
Quarter: 2015Q3

REPORT INFORMATION
  Report Type: Spontaneous
  Country: KE (occurrence: None)
  Receive Date: 20150724
  Receipt Date: 20150724
  Transmission Date: 20151125
  Serious: Yes (Congenital Anomaly, Other)
  Sender: FDA-Public Use
  Company Number: 2015HINCT0621

PATIENT
  Sex: Male

DRUGS (1)
  1. EFAVIRENZ+LAMIVUDINE+TENOFOVIR(EFAVIRENZ, LAMIVUDINE, TENOFOVIR) UNKNOWN [Suspect]
     Active Substance: EFAVIRENZ\LAMIVUDINE\TENOFOVIR
     Indication: MATERNAL EXPOSURE DURING PREGNANCY
     Route: 064
     Dates: start: 20140307

REACTIONS (5)
  - Premature baby [None]
  - Live birth [None]
  - Cleft lip and palate [None]
  - Foetal exposure during pregnancy [None]
  - Maternal drugs affecting foetus [None]
